FAERS Safety Report 6056113-4 (Version None)
Quarter: 2009Q1

REPORT INFORMATION
  Report Type: 
  Country: None (occurrence: None)
  Receive Date: 20090128
  Receipt Date: 20090116
  Transmission Date: 20090719
  Serious: Yes (Hospitalization)
  Sender: FDA-Public Use
  Company Number: AT-ELI_LILLY_AND_COMPANY-AT200901002607

PATIENT
  Age: 81 Year
  Sex: Female
  Weight: 94 kg

DRUGS (9)
  1. CYMBALTA [Suspect]
     Indication: DEPRESSION
     Dosage: 30 MG, DAILY (1/D)
     Route: 048
     Dates: start: 20081031, end: 20081103
  2. AQUAPHORIL [Concomitant]
     Dosage: UNK, UNKNOWN
     Route: 065
  3. LOVENOX [Concomitant]
     Dosage: UNK, UNKNOWN
     Route: 065
  4. PANTOLOC                           /01263201/ [Concomitant]
     Dosage: 40 MG, DAILY (1/D)
     Route: 065
  5. NORVASC [Concomitant]
     Dosage: 10 MG, DAILY (1/D)
     Route: 065
  6. DURAGESIC-100 [Concomitant]
     Dosage: 100 UG, UNKNOWN
     Route: 065
  7. NOVALGIN [Concomitant]
     Dosage: 500 MG, 4/D
     Route: 065
  8. LASILACTON [Concomitant]
     Dosage: 20MG/100MG UNKNOWN
     Route: 065
  9. PERFALGAN [Concomitant]
     Dosage: 1 MG, 3/D
     Route: 065

REACTIONS (2)
  - HYPOTENSION [None]
  - SOMNOLENCE [None]
